FAERS Safety Report 5510915-9 (Version None)
Quarter: 2007Q4

REPORT INFORMATION
  Report Type: 
  Country: None (occurrence: None)
  Receive Date: 20071029
  Receipt Date: 20071017
  Transmission Date: 20080405
  Serious: Yes (Hospitalization, Disabling)
  Sender: FDA-Public Use
  Company Number: 200712203

PATIENT
  Age: 20 Year
  Sex: Female

DRUGS (4)
  1. CARIMUNE NF [Suspect]
     Indication: AUTOIMMUNE THROMBOCYTOPENIA
     Dosage: IV
     Route: 042
     Dates: start: 20070801, end: 20070807
  2. PRENATAL VITAMINS [Concomitant]
  3. PREDNISONE TAB [Concomitant]
  4. ZITHROMAX [Concomitant]

REACTIONS (22)
  - ABORTION SPONTANEOUS [None]
  - ANAEMIA HAEMOLYTIC AUTOIMMUNE [None]
  - ANTIBODY TEST POSITIVE [None]
  - ASPARTATE AMINOTRANSFERASE INCREASED [None]
  - BLOOD BICARBONATE DECREASED [None]
  - BLOOD CHLORIDE DECREASED [None]
  - BLOOD IMMUNOGLOBULIN G INCREASED [None]
  - BLOOD IMMUNOGLOBULIN M INCREASED [None]
  - BLOOD LACTATE DEHYDROGENASE INCREASED [None]
  - BLOOD POTASSIUM DECREASED [None]
  - BLOOD SODIUM DECREASED [None]
  - BLOOD UREA DECREASED [None]
  - CHILLS [None]
  - DRUG EXPOSURE DURING PREGNANCY [None]
  - EPISTAXIS [None]
  - FATIGUE [None]
  - IDIOPATHIC THROMBOCYTOPENIC PURPURA [None]
  - INTERNATIONAL NORMALISED RATIO DECREASED [None]
  - PROTEINURIA [None]
  - PYREXIA [None]
  - ROCKY MOUNTAIN SPOTTED FEVER [None]
  - THROMBOCYTOPENIA [None]
